FAERS Safety Report 7107713-1 (Version None)
Quarter: 2010Q4

REPORT INFORMATION
  Report Type: 
  Country: None (occurrence: None)
  Receive Date: 20101117
  Receipt Date: 20101112
  Transmission Date: 20110411
  Serious: Yes (Death)
  Sender: FDA-Public Use
  Company Number: SE-BRISTOL-MYERS SQUIBB COMPANY-15351273

PATIENT
  Age: 78 Year
  Sex: Male

DRUGS (9)
  1. SPRYCEL [Suspect]
     Dosage: PROBABLY
     Dates: start: 20100608
  2. ACETYLSALICYLIC ACID SRT [Concomitant]
     Dates: start: 20090901
  3. IMDUR [Concomitant]
     Dates: start: 20091101
  4. FURIX [Concomitant]
     Dates: start: 20091101
  5. CLOPIDOGREL BISULFATE [Concomitant]
     Dates: start: 20100901
  6. SPIRONOLAKTON [Concomitant]
     Dates: start: 20100601
  7. METOPROLOL [Concomitant]
     Dates: start: 20090601
  8. LOSARTAN [Concomitant]
     Dates: start: 20100801
  9. SIMVASTATIN [Concomitant]
     Dates: start: 20091101

REACTIONS (1)
  - SUDDEN CARDIAC DEATH [None]
